FAERS Safety Report 5877196-8 (Version None)
Quarter: 2008Q3

REPORT INFORMATION
  Report Type: 
  Country: None (occurrence: None)
  Receive Date: 20080908
  Receipt Date: 20080908
  Transmission Date: 20090109
  Serious: Yes (Other)
  Sender: FDA-Public Use
  Company Number: None

PATIENT
  Age: 60 Year
  Sex: Female
  Weight: 64.4108 kg

DRUGS (1)
  1. CYMBALTA [Suspect]
     Indication: PAIN
     Dosage: 1 PER DAY
     Dates: start: 20070115, end: 20080314

REACTIONS (9)
  - BLOOD CHOLESTEROL INCREASED [None]
  - CONSTIPATION [None]
  - DRUG WITHDRAWAL SYNDROME [None]
  - FEAR [None]
  - FEELING ABNORMAL [None]
  - FEMALE SEXUAL DYSFUNCTION [None]
  - NERVOUS SYSTEM DISORDER [None]
  - SLEEP DISORDER [None]
  - WEIGHT INCREASED [None]
